FAERS Safety Report 15458249 (Version 2)
Quarter: 2018Q4

REPORT INFORMATION
  Report Type: Spontaneous
  Country: JP (occurrence: JP)
  Receive Date: 20181003
  Receipt Date: 20181004
  Transmission Date: 20190204
  Serious: Yes (Other)
  Sender: FDA-Public Use
  Company Number: JP-TEVA-2018-JP-002238J

PATIENT
  Age: 83 Year
  Sex: Female

DRUGS (2)
  1. HALCION [Concomitant]
     Active Substance: TRIAZOLAM
     Indication: INSOMNIA
     Route: 048
  2. CONSTAN 0.4MG.TABLETS [Suspect]
     Active Substance: ALPRAZOLAM
     Indication: INSOMNIA
     Dosage: .4 MILLIGRAM DAILY;
     Route: 048

REACTIONS (3)
  - Thirst [Not Recovered/Not Resolved]
  - Renal impairment [Unknown]
  - Urinary retention [Unknown]
